FAERS Safety Report 10512060 (Version 2)
Quarter: 2014Q4

REPORT INFORMATION
  Report Type: Report from Study
  Country: US (occurrence: US)
  Receive Date: 20141010
  Receipt Date: 20141010
  Transmission Date: 20150528
  Serious: Yes (Death, Other)
  Sender: FDA-Public Use
  Company Number: US-ABBVIE-14K-163-1287192-00

PATIENT
  Age: 56 Year
  Sex: Female
  Weight: 81.72 kg

DRUGS (4)
  1. UNKNOWN CHEMO INFUSION [Concomitant]
     Indication: PRODUCT USED FOR UNKNOWN INDICATION
  2. HUMIRA [Suspect]
     Active Substance: ADALIMUMAB
     Indication: RHEUMATOID ARTHRITIS
     Route: 058
     Dates: start: 2013
  3. HUMIRA [Suspect]
     Active Substance: ADALIMUMAB
     Route: 058
     Dates: start: 20140617, end: 20140902
  4. METHOTREXATE [Concomitant]
     Active Substance: METHOTREXATE
     Indication: PRODUCT USED FOR UNKNOWN INDICATION

REACTIONS (15)
  - Gangrene [Unknown]
  - Skin ulcer [Not Recovered/Not Resolved]
  - Central nervous system necrosis [Fatal]
  - Electrocardiogram T wave peaked [Unknown]
  - Skin discolouration [Unknown]
  - Pulmonary oedema [Fatal]
  - Sepsis [Fatal]
  - Brain neoplasm malignant [Fatal]
  - Glioblastoma [Fatal]
  - Brain neoplasm [Fatal]
  - Dehydration [Recovered/Resolved]
  - Vomiting [Unknown]
  - Headache [Unknown]
  - Weight decreased [Not Recovered/Not Resolved]
  - Neuropathy peripheral [Recovered/Resolved]

NARRATIVE: CASE EVENT DATE: 2013
